FAERS Safety Report 9123994 (Version 1)
Quarter: 2013Q1

REPORT INFORMATION
  Report Type: Spontaneous
  Country: NO (occurrence: NO)
  Receive Date: 20130116
  Receipt Date: 20130116
  Transmission Date: 20140127
  Serious: Yes (Congenital Anomaly, Other)
  Sender: FDA-Public Use
  Company Number: NO-PFIZER INC-2013017320

PATIENT
  Age: 6 Month
  Sex: Male

DRUGS (3)
  1. SALAZOPYRIN [Suspect]
     Indication: PSORIATIC ARTHROPATHY
     Dosage: UNK
     Route: 064
  2. FOLIC ACID [Concomitant]
     Route: 064
  3. DEPO-MEDROL [Concomitant]
     Route: 064

REACTIONS (2)
  - Maternal exposure timing unspecified [Recovered/Resolved with Sequelae]
  - Deafness congenital [Recovered/Resolved with Sequelae]
